FAERS Safety Report 6388883-X (Version None)
Quarter: 2009Q4

REPORT INFORMATION
  Report Type: 
  Country: None (occurrence: None)
  Receive Date: 20091001
  Receipt Date: 20090918
  Transmission Date: 20100525
  Serious: Yes (Congenital Anomaly)
  Sender: FDA-Public Use
  Company Number: 8049960

PATIENT

DRUGS (3)
  1. LEVETIRACETAM [Suspect]
     Dosage: 1500 MG /D TRP
     Route: 064
  2. VALPROIC ACID [Concomitant]
  3. PHENOBARBITAL [Concomitant]

REACTIONS (2)
  - CONGENITAL MITRAL VALVE INCOMPETENCE [None]
  - MATERNAL DRUGS AFFECTING FOETUS [None]
